FAERS Safety Report 25158729 (Version 1)
Quarter: 2025Q2

REPORT INFORMATION
  Report Type: Spontaneous
  Country: US (occurrence: US)
  Receive Date: 20250404
  Receipt Date: 20250404
  Transmission Date: 20250716
  Serious: No
  Sender: ELI LILLY AND CO
  Company Number: US-ELI_LILLY_AND_COMPANY-US202504000031

PATIENT
  Age: 25 Year
  Sex: Female
  Weight: 120.18 kg

DRUGS (1)
  1. BASAGLAR [Suspect]
     Active Substance: INSULIN GLARGINE
     Indication: Product used for unknown indication
     Route: 065

REACTIONS (4)
  - Erythema [Unknown]
  - Pustule [Unknown]
  - Skin infection [Unknown]
  - Pruritus [Unknown]

NARRATIVE: CASE EVENT DATE: 20250303
